FAERS Safety Report 23699857 (Version 1)
Quarter: 2024Q2

REPORT INFORMATION
  Report Type: Report from Study
  Country: US (occurrence: US)
  Receive Date: 20240403
  Receipt Date: 20240403
  Transmission Date: 20240716
  Serious: Yes (Other)
  Sender: FDA-Public Use
  Company Number: US-ARGENX-2023-ARGX-US002280

PATIENT

DRUGS (2)
  1. VYVGART [Suspect]
     Active Substance: EFGARTIGIMOD ALFA-FCAB
     Indication: Myasthenia gravis
     Dosage: UNK
     Route: 042
     Dates: start: 20230615
  2. VYVGART [Suspect]
     Active Substance: EFGARTIGIMOD ALFA-FCAB
     Dosage: UNK

REACTIONS (11)
  - Osteoarthritis [Unknown]
  - Astigmatism [Unknown]
  - Peripheral swelling [Unknown]
  - Erythema [Unknown]
  - Arthropod bite [Unknown]
  - Bursitis [Not Recovered/Not Resolved]
  - Infection [Unknown]
  - Cellulitis [Unknown]
  - Cartilage injury [Unknown]
  - Oedema [Unknown]
  - Pain [Unknown]

NARRATIVE: CASE EVENT DATE: 20231128
